FAERS Safety Report 10188445 (Version 1)
Quarter: 2014Q2

REPORT INFORMATION
  Report Type: Spontaneous
  Country: IT (occurrence: None)
  Receive Date: 20140520
  Receipt Date: 20140520
  Transmission Date: 20141212
  Serious: Yes (Hospitalization)
  Sender: FDA-Public Use
  Company Number: 2014HINLIT0434

PATIENT
  Age: 46 Year
  Sex: Male

DRUGS (7)
  1. TENOFOVIR (TENOFOVIR) UNKNOWN [Suspect]
     Indication: ANTIRETROVIRAL THERAPY
     Dates: start: 2008
  2. EMTRICITABINE (EMTRICITABINE) [Concomitant]
  3. LOPINAVIR/RITONAVIR (LOPINAVIR/RITONAVIR) [Concomitant]
  4. FENOFIBRATE (FENOFIBRATE) [Concomitant]
  5. AMISULPRIDE (AMISULPRIDE) [Concomitant]
  6. ABACAVIR (ABACAVIR) [Concomitant]
  7. LAMIVUDINE (LAMIVUDINE) [Concomitant]

REACTIONS (7)
  - Bone lesion [None]
  - Osteopenia [None]
  - Pyrexia [None]
  - Inflammation [None]
  - Arthralgia [None]
  - Blood alkaline phosphatase increased [None]
  - Osteonecrosis [None]
